FAERS Safety Report 6250315-X (Version None)
Quarter: 2009Q2

REPORT INFORMATION
  Report Type: 
  Country: None (occurrence: None)
  Receive Date: 20090626
  Receipt Date: 20090626
  Transmission Date: 20091009
  Serious: Yes (Other)
  Sender: FDA-Public Use
  Company Number: None

PATIENT
  Age: 51 Year
  Sex: Female
  Weight: 86.1834 kg

DRUGS (2)
  1. AMPHETAMINE AND DEXTROAMPHETAMINE SALTS [Suspect]
     Indication: ATTENTION DEFICIT/HYPERACTIVITY DISORDER
     Dosage: 30 MG TWICE DAILY PO
     Route: 048
     Dates: start: 20090301, end: 20090625
  2. ADDERALL 10 [Suspect]

REACTIONS (4)
  - AGITATION [None]
  - DRUG EFFECT DECREASED [None]
  - ECONOMIC PROBLEM [None]
  - PRODUCT SUBSTITUTION ISSUE [None]
